FAERS Safety Report 5744113-0 (Version None)
Quarter: 2008Q2

REPORT INFORMATION
  Report Type: 
  Country: None (occurrence: None)
  Receive Date: 20080520
  Receipt Date: 20080515
  Transmission Date: 20081010
  Serious: Yes (Other)
  Sender: FDA-Public Use
  Company Number: B0507977A

PATIENT
  Age: 9 Year
  Sex: Male
  Weight: 35 kg

DRUGS (2)
  1. RELENZA [Suspect]
     Indication: INFLUENZA
     Dosage: 10MG TWICE PER DAY
     Route: 055
     Dates: start: 20080109, end: 20080109
  2. ANHIBA [Concomitant]
     Dosage: 100MG PER DAY
     Route: 054
     Dates: start: 20080109, end: 20080109

REACTIONS (1)
  - ABNORMAL BEHAVIOUR [None]
